FAERS Safety Report 18452481 (Version 2)
Quarter: 2020Q4

REPORT INFORMATION
  Report Type: Spontaneous
  Country: US (occurrence: US)
  Receive Date: 20201102
  Receipt Date: 20201103
  Transmission Date: 20210114
  Serious: Yes (Other)
  Sender: FDA-Public Use
  Company Number: US-PFIZER INC-2020419497

PATIENT
  Age: 58 Year
  Sex: Female
  Weight: 65.77 kg

DRUGS (2)
  1. GABAPENTIN. [Suspect]
     Active Substance: GABAPENTIN
     Indication: SPINAL DISORDER
     Dosage: 300 MG, 4X/DAY [300MG ORAL FOUR TIMES A DAY]
     Route: 048
     Dates: end: 201906
  2. GABAPENTIN. [Suspect]
     Active Substance: GABAPENTIN
     Indication: NEURALGIA

REACTIONS (11)
  - Tooth fracture [Recovering/Resolving]
  - Joint swelling [Recovered/Resolved]
  - Weight decreased [Unknown]
  - Off label use [Unknown]
  - Respiratory tract oedema [Recovering/Resolving]
  - Drug effective for unapproved indication [Unknown]
  - Hypertension [Recovered/Resolved]
  - Deafness neurosensory [Unknown]
  - Dysphagia [Unknown]
  - Product use in unapproved indication [Unknown]
  - Condition aggravated [Unknown]

NARRATIVE: CASE EVENT DATE: 2019
